FAERS Safety Report 10183809 (Version 2)
Quarter: 2014Q2

REPORT INFORMATION
  Report Type: Spontaneous
  Country: AE (occurrence: AE)
  Receive Date: 20140520
  Receipt Date: 20140520
  Transmission Date: 20141212
  Serious: Yes (Other)
  Sender: FDA-Public Use
  Company Number: AE-ALLERGAN-1408694US

PATIENT
  Sex: Female

DRUGS (1)
  1. OZURDEX [Suspect]
     Indication: UVEITIS
     Dosage: 0.7 MG, SINGLE
     Route: 031

REACTIONS (3)
  - Visual acuity reduced [Unknown]
  - Device dislocation [Recovered/Resolved]
  - Corneal oedema [Recovered/Resolved]
